FAERS Safety Report 8088255 (Version 4)
Quarter: 2013Q3

REPORT INFORMATION
  Report Type: Spontaneous
  Country: US (occurrence: US)
  Receive Date: 20110812
  Receipt Date: 20130711
  Transmission Date: 20140515
  Serious: Yes (Other)
  Sender: FDA-Public Use
  Company Number: US-ROCHE-795965

PATIENT
  Age: 49 Year
  Sex: Male
  Weight: 99.88 kg

DRUGS (2)
  1. ACCUTANE [Suspect]
     Indication: ACNE
     Route: 065
     Dates: start: 19960520, end: 19960531
  2. ACCUTANE [Suspect]
     Route: 065
     Dates: start: 1996, end: 2002

REACTIONS (8)
  - Colitis ulcerative [Unknown]
  - Inflammatory bowel disease [Unknown]
  - Depression [Unknown]
  - Injury [Unknown]
  - Crohn^s disease [Unknown]
  - Large intestine polyp [Unknown]
  - Irritable bowel syndrome [Unknown]
  - Dry mouth [Unknown]
